FAERS Safety Report 20449255 (Version 1)
Quarter: 2022Q1

REPORT INFORMATION
  Report Type: Spontaneous
  Country: US (occurrence: None)
  Receive Date: 20220208
  Receipt Date: 20220208
  Transmission Date: 20220423
  Serious: Yes (Hospitalization)
  Sender: FDA-Public Use
  Company Number: None

PATIENT
  Age: 50 Year
  Sex: Female
  Weight: 79.4 kg

DRUGS (1)
  1. BELATACEPT [Suspect]
     Active Substance: BELATACEPT
     Indication: Renal transplant
     Dosage: FREQUENCY : AS NEEDED;?
     Route: 042
     Dates: start: 20211216

REACTIONS (2)
  - Acute kidney injury [None]
  - Drug level decreased [None]

NARRATIVE: CASE EVENT DATE: 20220207
